FAERS Safety Report 23797563 (Version 1)
Quarter: 2024Q2

REPORT INFORMATION
  Report Type: Spontaneous
  Country: US (occurrence: US)
  Receive Date: 20240430
  Receipt Date: 20240430
  Transmission Date: 20240716
  Serious: No
  Sender: FDA-Public Use
  Company Number: US-AUROBINDO-AUR-APL-2023-058024

PATIENT
  Age: 9 Year
  Sex: Female
  Weight: 30.844 kg

DRUGS (1)
  1. FLUOXETINE HYDROCHLORIDE [Suspect]
     Active Substance: FLUOXETINE HYDROCHLORIDE
     Indication: Anxiety
     Dosage: 1 DOSAGE FORM, EVERY MORNING
     Route: 048
     Dates: start: 20230830, end: 20230901

REACTIONS (4)
  - Abdominal pain upper [Recovered/Resolved]
  - Product odour abnormal [Unknown]
  - Product taste abnormal [Unknown]
  - Drug intolerance [Unknown]

NARRATIVE: CASE EVENT DATE: 20230830
